FAERS Safety Report 19723931 (Version 4)
Quarter: 2022Q1

REPORT INFORMATION
  Report Type: Report from Study
  Country: CN (occurrence: None)
  Receive Date: 20210820
  Receipt Date: 20220106
  Transmission Date: 20220423
  Serious: Yes (Hospitalization)
  Sender: FDA-Public Use
  Company Number: CN-ROCHE-2890174

PATIENT
  Age: 31 Year
  Sex: Female
  Weight: 53.5 kg

DRUGS (7)
  1. PYROTINIB [Suspect]
     Active Substance: PYROTINIB
     Indication: HER2 positive breast cancer
     Route: 048
     Dates: start: 20210611
  2. PYROTINIB [Suspect]
     Active Substance: PYROTINIB
     Route: 048
     Dates: start: 20210702
  3. PYROTINIB [Suspect]
     Active Substance: PYROTINIB
     Route: 048
     Dates: start: 20210722
  4. TRASTUZUMAB [Suspect]
     Active Substance: TRASTUZUMAB
     Indication: HER2 positive breast cancer
     Dosage: DAY 1
     Route: 042
     Dates: start: 20210611
  5. TRASTUZUMAB [Suspect]
     Active Substance: TRASTUZUMAB
     Route: 042
     Dates: start: 20210702
  6. PACLITAXEL [Suspect]
     Active Substance: PACLITAXEL
     Indication: HER2 positive breast cancer
     Route: 042
     Dates: start: 20210611
  7. LEVOTHYROXINE SODIUM [Concomitant]
     Active Substance: LEVOTHYROXINE SODIUM
     Indication: Hypothyroidism
     Route: 048
     Dates: start: 2018

REACTIONS (1)
  - Dermatitis [Not Recovered/Not Resolved]

NARRATIVE: CASE EVENT DATE: 20210730
